FAERS Safety Report 8873833 (Version 5)
Quarter: 2014Q1

REPORT INFORMATION
  Report Type: Spontaneous
  Country: US (occurrence: US)
  Receive Date: 20121023
  Receipt Date: 20140203
  Transmission Date: 20141002
  Serious: Yes (Hospitalization, Other)
  Sender: FDA-Public Use
  Company Number: US-ASTELLAS-2012US003580

PATIENT
  Age: 58 Year
  Sex: Male
  Weight: 58 kg

DRUGS (7)
  1. LEXISCAN [Suspect]
     Indication: SCAN MYOCARDIAL PERFUSION
     Dosage: UNK
     Route: 065
     Dates: start: 20120314, end: 20120314
  2. ASPIRIN [Concomitant]
     Indication: PRODUCT USED FOR UNKNOWN INDICATION
     Dosage: 325 MG, UID/QD
     Route: 048
  3. NITROSTAT [Concomitant]
     Indication: PAIN
     Dosage: 0.4 MG, PRN
     Route: 060
  4. MOTRIN [Concomitant]
     Indication: PRODUCT USED FOR UNKNOWN INDICATION
     Dosage: 800 MG, UID/QD
     Route: 048
     Dates: end: 20120403
  5. PRAVASTATIN SODIUM [Concomitant]
     Indication: BLOOD CHOLESTEROL INCREASED
     Dosage: 20 MG, QHS
     Route: 048
  6. MYOVIEW                            /01238501/ [Concomitant]
     Indication: SCAN MYOCARDIAL PERFUSION
     Dosage: 9.60 MCI, TOTAL DOSE
     Route: 042
     Dates: start: 20130314, end: 20130314
  7. MYOVIEW                            /01238501/ [Concomitant]
     Dosage: 29.3 MCI, TOTAL DOSE
     Route: 042
     Dates: start: 20130314, end: 20130314

REACTIONS (7)
  - Off label use [Unknown]
  - Acute myocardial infarction [Unknown]
  - Cardiac output decreased [Unknown]
  - Hepatic enzyme increased [Unknown]
  - General physical health deterioration [Unknown]
  - Ventricular arrhythmia [Unknown]
  - Cardiac arrest [Unknown]
